FAERS Safety Report 5308890-5 (Version None)
Quarter: 2007Q2

REPORT INFORMATION
  Report Type: 
  Country: None (occurrence: None)
  Receive Date: 20070426
  Receipt Date: 20070417
  Transmission Date: 20071010
  Serious: Yes (Hospitalization)
  Sender: FDA-Public Use
  Company Number: US-PFIZER INC-2006064267

PATIENT
  Sex: Female
  Weight: 112.9 kg

DRUGS (11)
  1. SUNITINIB MALATE [Suspect]
     Indication: BREAST CANCER
     Route: 048
  2. ZOLOFT [Concomitant]
     Route: 048
  3. KLONOPIN [Concomitant]
     Route: 048
  4. PERCOCET [Concomitant]
     Route: 048
  5. SYNTHROID [Concomitant]
     Route: 048
  6. ZOMETA [Concomitant]
     Route: 042
  7. ACETAMINOPHEN [Concomitant]
     Route: 048
  8. IBUPROFEN [Concomitant]
     Route: 048
  9. MAGIC MOUTHWASH [Concomitant]
     Route: 048
  10. CLOTRIMAZOLE [Concomitant]
     Route: 061
  11. DIFLUCAN [Concomitant]
     Route: 048

REACTIONS (8)
  - ABDOMINAL DISCOMFORT [None]
  - ANOREXIA [None]
  - ASTHENIA [None]
  - DEHYDRATION [None]
  - DYSGEUSIA [None]
  - FAILURE TO THRIVE [None]
  - FATIGUE [None]
  - WEIGHT DECREASED [None]
